FAERS Safety Report 21465991 (Version 1)
Quarter: 2022Q4

REPORT INFORMATION
  Report Type: Spontaneous
  Country: US (occurrence: None)
  Receive Date: 20221015
  Receipt Date: 20221015
  Transmission Date: 20230113
  Serious: Yes (Other)
  Sender: FDA-Public Use
  Company Number: None

PATIENT
  Age: 65 Year
  Sex: Male
  Weight: 84.15 kg

DRUGS (1)
  1. MAGNESIUM CITRATE [Suspect]
     Active Substance: MAGNESIUM CITRATE
     Indication: Colonoscopy
     Dosage: OTHER ROUTE : BY MOUTH, DRANK IN 5 MINUTE;?
     Route: 050

REACTIONS (2)
  - Recalled product administered [None]
  - Gastrointestinal disorder [None]

NARRATIVE: CASE EVENT DATE: 20220701
